FAERS Safety Report 14878564 (Version 1)
Quarter: 2018Q2

REPORT INFORMATION
  Report Type: Spontaneous
  Country: US (occurrence: US)
  Receive Date: 20180511
  Receipt Date: 20180511
  Transmission Date: 20180711
  Serious: Yes (Death)
  Sender: FDA-Public Use
  Company Number: US-CIPLA (EU) LIMITED-2018US17359

PATIENT

DRUGS (14)
  1. CISPLATIN. [Suspect]
     Active Substance: CISPLATIN
     Indication: CHOLANGIOCARCINOMA
     Dosage: UNK, NEOADJUVANT THERAPY
     Route: 065
  2. FOLINIC ACID [Suspect]
     Active Substance: LEUCOVORIN
     Indication: CHOLANGIOCARCINOMA
     Dosage: UNK
     Route: 065
  3. ERLOTINIB [Suspect]
     Active Substance: ERLOTINIB
     Indication: CHOLANGIOCARCINOMA
     Dosage: UNK, NEOADJUVANT THERAPY
     Route: 065
  4. GEMCITABINE [Suspect]
     Active Substance: GEMCITABINE\GEMCITABINE HYDROCHLORIDE
     Indication: CHOLANGIOCARCINOMA
     Dosage: UNK, NEOADJUVANT THERAPY
     Route: 065
  5. IRINOTECAN [Suspect]
     Active Substance: IRINOTECAN
     Indication: CHOLANGIOCARCINOMA
     Dosage: UNK, NEOADJUVANT THERAPY
     Route: 065
  6. CISPLATIN. [Suspect]
     Active Substance: CISPLATIN
     Dosage: UNK, NEOADJUVANT THERAPY
     Route: 065
  7. GEMCITABINE [Suspect]
     Active Substance: GEMCITABINE\GEMCITABINE HYDROCHLORIDE
     Dosage: UNK, NEOADJUVANT THERAPY
     Route: 065
  8. FLUOROURACIL. [Suspect]
     Active Substance: FLUOROURACIL
     Indication: CHOLANGIOCARCINOMA
     Dosage: UNK, NEOADJUVANT THERAPY
     Route: 065
  9. TACROLIMUS. [Suspect]
     Active Substance: TACROLIMUS
     Indication: IMMUNOSUPPRESSANT DRUG THERAPY
     Dosage: UNK
     Route: 065
  10. MYCOPHENOLATE MOFETIL. [Suspect]
     Active Substance: MYCOPHENOLATE MOFETIL
     Indication: IMMUNOSUPPRESSANT DRUG THERAPY
     Dosage: UNK
     Route: 065
  11. GEMCITABINE [Suspect]
     Active Substance: GEMCITABINE\GEMCITABINE HYDROCHLORIDE
     Dosage: UNK, NEOADJUVANT THERAPY
     Route: 065
  12. GEMCITABINE [Suspect]
     Active Substance: GEMCITABINE\GEMCITABINE HYDROCHLORIDE
     Dosage: UNK, NEOADJUVANT THERAPY
     Route: 065
  13. CISPLATIN. [Suspect]
     Active Substance: CISPLATIN
     Dosage: UNK, NEOADJUVANT THERAPY
     Route: 065
  14. CAPECITABINE. [Suspect]
     Active Substance: CAPECITABINE
     Indication: CHOLANGIOCARCINOMA
     Dosage: UNK, ADJUVANT THERAPY
     Route: 065

REACTIONS (4)
  - Metastases to bone [Fatal]
  - Neoplasm recurrence [Fatal]
  - Metastases to lung [Fatal]
  - Metastases to liver [Fatal]
